FAERS Safety Report 9361006 (Version 2)
Quarter: 2013Q3

REPORT INFORMATION
  Report Type: Spontaneous
  Country: BR (occurrence: BR)
  Receive Date: 20130621
  Receipt Date: 20130711
  Transmission Date: 20140515
  Serious: Yes (Other)
  Sender: FDA-Public Use
  Company Number: BR-PFIZER INC-2013180713

PATIENT
  Age: 58 Year
  Sex: Female
  Weight: 63 kg

DRUGS (2)
  1. CELEBRA [Suspect]
     Dosage: STRENGHT 200 MG, TWICE A DAY
     Dates: start: 20130226
  2. ULTRACET [Concomitant]
     Indication: ANALGESIC THERAPY
     Dosage: EVERY 6 HOURS

REACTIONS (1)
  - Spinal disorder [Unknown]
